FAERS Safety Report 9833918 (Version 1)
Quarter: 2014Q1

REPORT INFORMATION
  Report Type: Spontaneous
  Country: US (occurrence: US)
  Receive Date: 20140122
  Receipt Date: 20140122
  Transmission Date: 20141002
  Serious: No
  Sender: FDA-Public Use
  Company Number: US-BIOGENIDEC-2014BI005703

PATIENT
  Age: 54 Year
  Sex: Female

DRUGS (16)
  1. TECFIDERA [Suspect]
     Indication: MULTIPLE SCLEROSIS
     Route: 048
     Dates: start: 20130619
  2. AMITRIPTYLINE HCL [Concomitant]
  3. AMOXICILLIN [Concomitant]
  4. CITRACAL [Concomitant]
  5. DICYCLOMINE HCL [Concomitant]
  6. ESTRACE [Concomitant]
  7. GAS-X EXTRA STRENGTH [Concomitant]
  8. IMODIUM A-D [Concomitant]
  9. LIALDA [Concomitant]
  10. PRILOSEC [Concomitant]
  11. SOMA [Concomitant]
  12. SUMATRIPTAN SUCCINATE [Concomitant]
  13. VICODIN [Concomitant]
  14. VITAMIN B-12 [Concomitant]
  15. ZANAFLEX [Concomitant]
  16. ZOFRAN ODT [Concomitant]

REACTIONS (1)
  - Bronchitis [Unknown]
